FAERS Safety Report 8177155-9 (Version None)
Quarter: 2012Q1

REPORT INFORMATION
  Report Type: 
  Country: None (occurrence: None)
  Receive Date: 20120301
  Receipt Date: 20120222
  Transmission Date: 20120608
  Serious: Yes (Hospitalization)
  Sender: FDA-Public Use
  Company Number: DE-GLAXOSMITHKLINE-B0784520A

PATIENT
  Sex: Female

DRUGS (4)
  1. LAPATINIB [Suspect]
     Dosage: 750MG PER DAY
     Dates: start: 20120124
  2. TRASTUZUMAB [Suspect]
     Indication: BREAST CANCER
     Dosage: 624MG EVERY 3 WEEKS
     Dates: start: 20120124
  3. PACLITAXEL [Suspect]
     Indication: BREAST CANCER
     Dates: start: 20120124
  4. DOXORUBICIN HCL [Suspect]
     Indication: BREAST CANCER
     Dosage: 36MG WEEKLY
     Dates: start: 20120124

REACTIONS (1)
  - GENERAL PHYSICAL HEALTH DETERIORATION [None]
